FAERS Safety Report 19192992 (Version 1)
Quarter: 2021Q2

REPORT INFORMATION
  Report Type: Spontaneous
  Country: US (occurrence: US)
  Receive Date: 20210428
  Receipt Date: 20210428
  Transmission Date: 20210717
  Serious: No
  Sender: FDA-Public Use
  Company Number: US-PERRIGO-20US017232

PATIENT
  Sex: Female

DRUGS (1)
  1. MICONAZOLE NITRATE. [Suspect]
     Active Substance: MICONAZOLE NITRATE
     Indication: VULVOVAGINAL PRURITUS
     Dosage: 200 MG, SINGLE
     Route: 067
     Dates: start: 202011, end: 202011

REACTIONS (1)
  - Vulvovaginal burning sensation [Recovering/Resolving]

NARRATIVE: CASE EVENT DATE: 202011
